FAERS Safety Report 13366599 (Version 2)
Quarter: 2017Q1

REPORT INFORMATION
  Report Type: Report from Study
  Country: None (occurrence: FI)
  Receive Date: 20170323
  Receipt Date: 20170328
  Transmission Date: 20170429
  Serious: Yes (Death)
  Sender: FDA-Public Use
  Company Number: FI-ABBVIE-17P-055-1914839-00

PATIENT
  Age: 58 Year
  Sex: Female

DRUGS (4)
  1. VAGIFEM [Concomitant]
     Active Substance: ESTRADIOL
     Indication: PRODUCT USED FOR UNKNOWN INDICATION
  2. DUODOPA [Suspect]
     Active Substance: CARBIDOPA\LEVODOPA
     Indication: PARKINSON^S DISEASE
     Dosage: DD 5.7; ND 4.7 OR 4.5 / MD AND  ED AMOUNTS WERE UNKNOWN
     Route: 050
     Dates: end: 20170314
  3. LAXORIN [Concomitant]
     Indication: PRODUCT USED FOR UNKNOWN INDICATION
  4. HIPREX [Concomitant]
     Active Substance: METHENAMINE HIPPURATE
     Indication: PRODUCT USED FOR UNKNOWN INDICATION

REACTIONS (1)
  - Pneumonia [Fatal]
